FAERS Safety Report 7270314-9 (Version None)
Quarter: 2010Q4

REPORT INFORMATION
  Report Type: 
  Country: None (occurrence: None)
  Receive Date: 20101130
  Receipt Date: 20100818
  Transmission Date: 20110411
  Serious: Yes (Other)
  Sender: FDA-Public Use
  Company Number: US201008005510

PATIENT
  Age: 57 Year
  Sex: Female
  Weight: 102 kg

DRUGS (18)
  1. BYETTA [Suspect]
     Indication: TYPE 2 DIABETES MELLITUS
     Dosage: 5 UG, 2/D, SUBCUTANEOUS; 10 UG, 2/D, SUBCUTANEOUS
     Route: 058
  2. NOVOLOG [Concomitant]
  3. LEVEMIR (INSULIN DETERMIR) [Concomitant]
  4. PROCRIT [Concomitant]
  5. ZEMPLAR [Concomitant]
  6. TRICOR [Concomitant]
  7. METOPROLOL (METOPROLOL) [Concomitant]
  8. FUROSEMIDE [Concomitant]
  9. PAROXETINE HCL [Concomitant]
  10. ALLOPURINOL [Concomitant]
  11. HYDRALAZINE HCL [Concomitant]
  12. LYRICA [Concomitant]
  13. HYDROCODONE BITARTRATE [Concomitant]
  14. METHADONE (METHADONE) [Concomitant]
  15. LORAZEPAM [Concomitant]
  16. AMITRIPTYLINE HYDROCHLORIDE [Concomitant]
  17. METYLDOPA (METHYLDOPA) [Concomitant]
  18. CARBIDOPA (CARBIDOPA) [Concomitant]

REACTIONS (16)
  - ABDOMINAL DISTENSION [None]
  - BLOOD GLUCOSE DECREASED [None]
  - CONSTIPATION [None]
  - DIZZINESS [None]
  - DYSGEUSIA [None]
  - ERUCTATION [None]
  - FLATULENCE [None]
  - HYPERHIDROSIS [None]
  - IMPAIRED GASTRIC EMPTYING [None]
  - NAUSEA [None]
  - OFF LABEL USE [None]
  - RED BLOOD CELL COUNT DECREASED [None]
  - RENAL FAILURE CHRONIC [None]
  - RESTLESS LEGS SYNDROME [None]
  - VITAMIN D DECREASED [None]
  - WEIGHT DECREASED [None]
